FAERS Safety Report 7150351-5 (Version None)
Quarter: 2010Q4

REPORT INFORMATION
  Report Type: 
  Country: None (occurrence: None)
  Receive Date: 20101210
  Receipt Date: 20101129
  Transmission Date: 20110411
  Serious: Yes (Other)
  Sender: FDA-Public Use
  Company Number: US-JNJFOC-20101202457

PATIENT
  Age: 84 Year
  Sex: Male
  Weight: 88.45 kg

DRUGS (17)
  1. TYLENOL (CAPLET) [Suspect]
     Route: 048
  2. TYLENOL (CAPLET) [Suspect]
     Indication: PRODUCT USED FOR UNKNOWN INDICATION
     Route: 048
  3. PRILOSEC [Concomitant]
     Indication: GASTROOESOPHAGEAL REFLUX DISEASE
     Route: 065
  4. ZOCOR [Concomitant]
     Indication: BLOOD CHOLESTEROL INCREASED
     Route: 065
  5. FLOMAX [Concomitant]
     Indication: BENIGN PROSTATIC HYPERPLASIA
     Route: 065
  6. ENABLEX [Concomitant]
     Indication: HYPERTONIC BLADDER
     Route: 065
  7. ALPHAGAN [Concomitant]
     Indication: GLAUCOMA
     Dosage: (0.1%) 2 DROPS PER EYE, TWICE DAILY
     Route: 047
  8. ATROVENT [Concomitant]
     Indication: PRODUCT USED FOR UNKNOWN INDICATION
     Dosage: (46%)
     Route: 065
  9. LASIX [Concomitant]
     Indication: OEDEMA
     Route: 065
  10. SYNTHROID [Concomitant]
     Indication: HYPOTHYROIDISM
     Route: 065
  11. PLAVIX [Concomitant]
     Indication: ACUTE CORONARY SYNDROME
     Dosage: 75MG EVERY OTHER DAY
     Route: 065
  12. POTASSIUM CHLORIDE [Concomitant]
     Indication: MINERAL SUPPLEMENTATION
     Route: 065
  13. NABUMETONE [Concomitant]
     Indication: ARTHRALGIA
     Route: 065
  14. ONE A DAY MULTIVITAMIN [Concomitant]
     Indication: VITAMIN SUPPLEMENTATION
     Dosage: 1 CAPLET DAILY
     Route: 065
  15. VITAMIN D [Concomitant]
     Indication: VITAMIN SUPPLEMENTATION
     Route: 065
  16. GLUCOSAMINE HYDROCHLORIDE [Concomitant]
     Indication: PRODUCT USED FOR UNKNOWN INDICATION
     Route: 065
  17. MACULAR DEGENERATION MEDICATION [Concomitant]
     Indication: MACULAR DEGENERATION
     Route: 065

REACTIONS (1)
  - DRUG HYPERSENSITIVITY [None]
